FAERS Safety Report 10353558 (Version 1)
Quarter: 2014Q3

REPORT INFORMATION
  Report Type: Spontaneous
  Country: IE (occurrence: IE)
  Receive Date: 20140731
  Receipt Date: 20140731
  Transmission Date: 20150326
  Serious: Yes (Other)
  Sender: FDA-Public Use
  Company Number: IE-009507513-1407IRL012172

PATIENT
  Sex: Female

DRUGS (1)
  1. SINGULAIR [Suspect]
     Active Substance: MONTELUKAST SODIUM
     Dosage: UNK
     Route: 048

REACTIONS (5)
  - Depression [Unknown]
  - Asthma [Recovering/Resolving]
  - Sleep disorder [Unknown]
  - Hyperhidrosis [Unknown]
  - Drug ineffective [Unknown]
